FAERS Safety Report 6062475-4 (Version None)
Quarter: 2009Q1

REPORT INFORMATION
  Report Type: 
  Country: None (occurrence: None)
  Receive Date: 20090202
  Receipt Date: 20090202
  Transmission Date: 20090719
  Serious: No
  Sender: FDA-Public Use
  Company Number: None

PATIENT
  Age: 6 Year
  Sex: Male
  Weight: 18.1439 kg

DRUGS (1)
  1. STRATTERA [Suspect]
     Indication: ATTENTION DEFICIT/HYPERACTIVITY DISORDER
     Dosage: DAILY PO
     Route: 048
     Dates: start: 20080508, end: 20081007

REACTIONS (2)
  - GRAND MAL CONVULSION [None]
  - IMPULSE-CONTROL DISORDER [None]
